FAERS Safety Report 5223697-5 (Version None)
Quarter: 2007Q1

REPORT INFORMATION
  Report Type: 
  Country: None (occurrence: None)
  Receive Date: 20070130
  Receipt Date: 20070119
  Transmission Date: 20070707
  Serious: Yes (Other)
  Sender: FDA-Public Use
  Company Number: PHFR2007GB00607

PATIENT
  Age: 59 Year
  Sex: Male

DRUGS (2)
  1. CLOZARIL [Suspect]
     Dosage: 350MG/UNK
     Dates: start: 20070118, end: 20070118
  2. RISPERDAL [Concomitant]

REACTIONS (5)
  - ACCIDENTAL EXPOSURE [None]
  - CONFUSIONAL STATE [None]
  - DRUG DISPENSING ERROR [None]
  - SEDATION [None]
  - URINARY INCONTINENCE [None]
